FAERS Safety Report 7037034-7 (Version None)
Quarter: 2010Q4

REPORT INFORMATION
  Report Type: 
  Country: None (occurrence: None)
  Receive Date: 20101011
  Receipt Date: 20101001
  Transmission Date: 20110411
  Serious: Yes (Hospitalization, Disabling)
  Sender: FDA-Public Use
  Company Number: US-ASTRAZENECA-2009SE32358

PATIENT
  Sex: Male

DRUGS (5)
  1. SEROQUEL [Suspect]
     Route: 048
  2. SEROQUEL [Suspect]
     Route: 048
  3. SEROQUEL [Suspect]
     Route: 048
  4. SEROQUEL [Suspect]
     Route: 048
  5. SEROQUEL [Suspect]
     Route: 048

REACTIONS (17)
  - BLINDNESS UNILATERAL [None]
  - CARDIAC DISORDER [None]
  - CATARACT OPERATION [None]
  - COMA [None]
  - FACIAL BONES FRACTURE [None]
  - FRACTURE [None]
  - HAND FRACTURE [None]
  - HYPOTHERMIA [None]
  - INFECTION [None]
  - LOSS OF CONSCIOUSNESS [None]
  - MEMORY IMPAIRMENT [None]
  - MUSCLE INJURY [None]
  - PALPITATIONS [None]
  - RIB FRACTURE [None]
  - ROAD TRAFFIC ACCIDENT [None]
  - SKULL FRACTURE [None]
  - VOMITING [None]
